FAERS Safety Report 8370299-8 (Version None)
Quarter: 2012Q2

REPORT INFORMATION
  Report Type: 
  Country: None (occurrence: None)
  Receive Date: 20120518
  Receipt Date: 20110720
  Transmission Date: 20120825
  Serious: No
  Sender: FDA-Public Use
  Company Number: US-ASTRAZENECA-2011SE52281

PATIENT
  Sex: Female

DRUGS (1)
  1. PRILOSEC OTC [Suspect]
     Dosage: 1 TABLET, 1 /DAY FOR THE LAST YEAR OR SO
     Route: 048

REACTIONS (3)
  - WEIGHT INCREASED [None]
  - INCORRECT DRUG ADMINISTRATION DURATION [None]
  - ABDOMINAL DISTENSION [None]
